FAERS Safety Report 17845685 (Version 1)
Quarter: 2020Q2

REPORT INFORMATION
  Report Type: Spontaneous
  Country: US (occurrence: US)
  Receive Date: 20200601
  Receipt Date: 20200601
  Transmission Date: 20200714
  Serious: No
  Sender: FDA-Public Use
  Company Number: US-MYLANLABS-2020M1051485

PATIENT
  Sex: Female

DRUGS (1)
  1. ESTRADIOL TRANSDERMAL SYSTEM [Suspect]
     Active Substance: ESTRADIOL
     Indication: PRODUCT USED FOR UNKNOWN INDICATION
     Dosage: CHANGE ONCE PER WEEK
     Route: 062

REACTIONS (6)
  - Hot flush [Recovering/Resolving]
  - Product quality issue [Unknown]
  - Product adhesion issue [Unknown]
  - Skin irritation [Unknown]
  - Application site erythema [Unknown]
  - Product residue present [Unknown]
